FAERS Safety Report 24424661 (Version 1)
Quarter: 2024Q4

REPORT INFORMATION
  Report Type: Report from Study
  Country: AU (occurrence: AU)
  Receive Date: 20241010
  Receipt Date: 20241010
  Transmission Date: 20250115
  Serious: Yes (Death)
  Sender: CSL BEHRING
  Company Number: AU-BEH-2024181116

PATIENT
  Age: 90 Year
  Sex: Female
  Weight: 54 kg

DRUGS (1)
  1. HIZENTRA [Suspect]
     Active Substance: HUMAN IMMUNOGLOBULIN G
     Indication: Primary immunodeficiency syndrome
     Dosage: 8 G, QW
     Route: 058

REACTIONS (1)
  - Death [Fatal]
